FAERS Safety Report 5295938-X (Version None)
Quarter: 2007Q2

REPORT INFORMATION
  Report Type: 
  Country: None (occurrence: None)
  Receive Date: 20070413
  Receipt Date: 20070402
  Transmission Date: 20071010
  Serious: Yes (Hospitalization)
  Sender: FDA-Public Use
  Company Number: DEWYE296602APR07

PATIENT
  Sex: Male
  Weight: 118 kg

DRUGS (1)
  1. ENBREL [Suspect]
     Indication: PSORIASIS
     Dosage: 2 X 25 MG WEEKLY
     Route: 058
     Dates: start: 20061024, end: 20070123

REACTIONS (5)
  - ATRIAL FIBRILLATION [None]
  - ATRIAL TACHYCARDIA [None]
  - HYPERTHYROIDISM [None]
  - TREMOR [None]
  - WEIGHT DECREASED [None]
